FAERS Safety Report 6899721-0 (Version None)
Quarter: 2010Q3

REPORT INFORMATION
  Report Type: 
  Country: None (occurrence: None)
  Receive Date: 20100708
  Receipt Date: 20090724
  Transmission Date: 20110219
  Serious: Yes (Other)
  Sender: FDA-Public Use
  Company Number: 2009249244

PATIENT
  Age: 46 Year
  Sex: Female
  Weight: 71.7 kg

DRUGS (1)
  1. CHANTIX [Suspect]
     Indication: SMOKING CESSATION THERAPY
     Dosage: 0.5 MG, 1X/DAY, ORAL
     Route: 048
     Dates: start: 20090720, end: 20090724

REACTIONS (4)
  - ABNORMAL DREAMS [None]
  - BLOOD PRESSURE INCREASED [None]
  - PALPITATIONS [None]
  - TREMOR [None]
